FAERS Safety Report 21898712 (Version 1)
Quarter: 2023Q1

REPORT INFORMATION
  Report Type: Spontaneous
  Country: US (occurrence: None)
  Receive Date: 20230122
  Receipt Date: 20230122
  Transmission Date: 20230417
  Serious: Yes (Other)
  Sender: FDA-Public Use
  Company Number: None

PATIENT
  Age: 34 Year
  Sex: Female
  Weight: 58.5 kg

DRUGS (9)
  1. DUPIXENT [Suspect]
     Active Substance: DUPILUMAB
     Indication: Eosinophilic oesophagitis
     Dates: start: 20230113, end: 20230120
  2. MONTELUKAST [Concomitant]
     Active Substance: MONTELUKAST SODIUM
  3. Loradidine [Concomitant]
  4. ALENDRONATE [Concomitant]
     Active Substance: ALENDRONATE SODIUM
  5. Lenovo-E Estrad [Concomitant]
  6. LUBIPROSTONE [Concomitant]
     Active Substance: LUBIPROSTONE
  7. VITAMIN D [Concomitant]
     Active Substance: VITAMIN D NOS
  8. CALCIUM [Concomitant]
     Active Substance: CALCIUM
  9. MAGNESIUM [Concomitant]
     Active Substance: MAGNESIUM

REACTIONS (5)
  - Injection site erythema [None]
  - Injection site papule [None]
  - Hypersensitivity [None]
  - Pruritus [None]
  - Therapy cessation [None]

NARRATIVE: CASE EVENT DATE: 20230119
